FAERS Safety Report 11654759 (Version 1)
Quarter: 2015Q4

REPORT INFORMATION
  Report Type: Spontaneous
  Country: CZ (occurrence: CZ)
  Receive Date: 20151023
  Receipt Date: 20151023
  Transmission Date: 20160304
  Serious: Yes (Death, Hospitalization, Other)
  Sender: FDA-Public Use
  Company Number: CZ-AMGEN-CZESP2015110831

PATIENT
  Age: 77 Year
  Sex: Male

DRUGS (13)
  1. SORTIS [Concomitant]
     Active Substance: ATORVASTATIN
     Dosage: 20 MG, DAILY
     Dates: end: 201509
  2. PROCORALAN [Suspect]
     Active Substance: IVABRADINE
     Indication: MYOCARDIAL ISCHAEMIA
  3. BISOPROLOL [Suspect]
     Active Substance: BISOPROLOL
     Indication: CARDIAC FAILURE CHRONIC
     Dosage: 2.5 MG, QD
     Route: 048
     Dates: end: 20150907
  4. PREDUCTAL                          /00489602/ [Concomitant]
     Active Substance: TRIMETAZIDINE DIHYDROCHLORIDE
     Dosage: 70 MG, DAILY
  5. ITOPRIDE HYDROCHLORIDE [Concomitant]
     Active Substance: ITOPRIDE HYDROCHLORIDE
     Dosage: 150 MG, DAILY
     Dates: end: 201509
  6. BISOPROLOL [Suspect]
     Active Substance: BISOPROLOL
     Indication: MYOCARDIAL ISCHAEMIA
     Dosage: SMALL DOSE; UNKNOWN
     Route: 065
     Dates: start: 201509
  7. ANOPYRIN [Concomitant]
     Active Substance: ASPIRIN
     Dosage: 100 MG, DAILY
  8. NOVOMIX [Concomitant]
     Active Substance: INSULIN ASPART
     Dosage: DAILY DOSE UNSPECIFIED
     Dates: end: 201509
  9. FURORESE                           /00032601/ [Concomitant]
     Dosage: 375 MG, DAILY
     Dates: end: 201509
  10. SOLIFENACIN W/TAMSULOSIN [Concomitant]
     Dosage: 0.6 MG/0.4MG DAILY
     Dates: end: 201509
  11. AKTIFERRIN                         /01729601/ [Concomitant]
     Dosage: UNK
     Dates: end: 201509
  12. PROCORALAN [Suspect]
     Active Substance: IVABRADINE
     Indication: CARDIAC FAILURE CHRONIC
     Dosage: 10 MG, QD
     Route: 048
     Dates: start: 20150827, end: 20150907
  13. JANUVIA [Concomitant]
     Active Substance: SITAGLIPTIN PHOSPHATE
     Dosage: 100 MG, DAILY
     Dates: end: 201509

REACTIONS (11)
  - Bradycardia [Unknown]
  - Hypokalaemia [Unknown]
  - Extrasystoles [Unknown]
  - Cardiac arrest [Fatal]
  - Cardiac failure [Unknown]
  - Blood creatinine increased [Unknown]
  - Bundle branch block right [Unknown]
  - Loss of consciousness [Unknown]
  - Bundle branch block left [Unknown]
  - Blood pressure decreased [Recovered/Resolved]
  - Atrioventricular block first degree [Unknown]

NARRATIVE: CASE EVENT DATE: 20150809
